FAERS Safety Report 25929167 (Version 2)
Quarter: 2025Q4

REPORT INFORMATION
  Report Type: Report from Study
  Country: US (occurrence: US)
  Receive Date: 20251016
  Receipt Date: 20251106
  Transmission Date: 20260118
  Serious: Yes (Other)
  Sender: SANOFI AVENTIS
  Company Number: US-SA-2025SA305778

PATIENT
  Age: 67 Year
  Sex: Female

DRUGS (3)
  1. DUPILUMAB [Suspect]
     Active Substance: DUPILUMAB
     Indication: Dermatitis atopic
     Dosage: 300 MG, QOW
     Route: 058
  2. DEMANNOSE [Concomitant]
     Active Substance: DEMANNOSE
     Dosage: UNK
  3. MULTAQ [Concomitant]
     Active Substance: DRONEDARONE
     Dosage: UNK

REACTIONS (5)
  - Breast cancer female [Unknown]
  - Cystitis [Recovered/Resolved]
  - Upper respiratory tract infection [Recovered/Resolved]
  - Exposure via skin contact [Unknown]
  - Accidental exposure to product [Unknown]

NARRATIVE: CASE EVENT DATE: 20251102
